FAERS Safety Report 7670057-3 (Version None)
Quarter: 2011Q3

REPORT INFORMATION
  Report Type: 
  Country: None (occurrence: None)
  Receive Date: 20110808
  Receipt Date: 20110803
  Transmission Date: 20111222
  Serious: Yes (Death)
  Sender: FDA-Public Use
  Company Number: ES-ASTRAZENECA-2011SE45567

PATIENT
  Age: 78 Year
  Sex: Female

DRUGS (9)
  1. DEFLAZACORT [Concomitant]
  2. CARBAMAZEPINE [Suspect]
     Indication: TREMOR
  3. HYDROXYZINE HCL [Concomitant]
  4. SULPIRIDE [Concomitant]
  5. OMEPRAZOLE [Suspect]
     Route: 048
  6. CILOSTAZOL [Suspect]
  7. CETIRIZINE HCL [Concomitant]
  8. CARBAMAZEPINE [Suspect]
     Indication: RESTLESS LEGS SYNDROME
  9. METILPREDNISOLONE [Concomitant]

REACTIONS (3)
  - DRUG INTERACTION [None]
  - TOXIC EPIDERMAL NECROLYSIS [None]
  - STEVENS-JOHNSON SYNDROME [None]
